FAERS Safety Report 13042992 (Version 2)
Quarter: 2017Q1

REPORT INFORMATION
  Report Type: Spontaneous
  Country: SE (occurrence: SE)
  Receive Date: 20161219
  Receipt Date: 20170120
  Transmission Date: 20170428
  Serious: Yes (Hospitalization, Other)
  Sender: FDA-Public Use
  Company Number: SE-ABBVIE-13P-150-1181698-00

PATIENT
  Age: 66 Year
  Sex: Female

DRUGS (17)
  1. MADOPARK [Concomitant]
     Active Substance: BENSERAZIDE HYDROCHLORIDE\LEVODOPA
     Indication: PARKINSON^S DISEASE
     Dosage: WHEN NEEDED
  2. INDERAL [Concomitant]
     Active Substance: PROPRANOLOL HYDROCHLORIDE
     Indication: PRODUCT USED FOR UNKNOWN INDICATION
  3. UNSPECIFIED ANTIBIOTIC [Concomitant]
     Active Substance: UNSPECIFIED INGREDIENT
     Indication: PRODUCT USED FOR UNKNOWN INDICATION
     Route: 042
     Dates: start: 201311
  4. ALVEDON [Concomitant]
     Active Substance: ACETAMINOPHEN
     Indication: PRODUCT USED FOR UNKNOWN INDICATION
  5. LEVAXIN [Concomitant]
     Active Substance: LEVOTHYROXINE SODIUM
  6. BETNOVAT [Concomitant]
     Active Substance: BETAMETHASONE
     Indication: PRODUCT USED FOR UNKNOWN INDICATION
  7. DUODOPA [Suspect]
     Active Substance: CARBIDOPA\LEVODOPA
     Indication: PARKINSON^S DISEASE
     Route: 050
     Dates: start: 20131104
  8. ZOPICLONE [Concomitant]
     Active Substance: ZOPICLONE
     Indication: PRODUCT USED FOR UNKNOWN INDICATION
  9. LEVAXIN [Concomitant]
     Active Substance: LEVOTHYROXINE SODIUM
     Indication: PRODUCT USED FOR UNKNOWN INDICATION
  10. MINIFOM [Concomitant]
     Indication: PRODUCT USED FOR UNKNOWN INDICATION
  11. PRONAXEN [Concomitant]
     Active Substance: NAPROXEN
     Indication: PRODUCT USED FOR UNKNOWN INDICATION
  12. MOVICOL [Concomitant]
     Active Substance: POLYETHYLENE GLYCOL 3350\POTASSIUM CHLORIDE\SODIUM BICARBONATE\SODIUM CHLORIDE
     Indication: PRODUCT USED FOR UNKNOWN INDICATION
  13. DIVISUN [Concomitant]
     Indication: PRODUCT USED FOR UNKNOWN INDICATION
     Dosage: 800
  14. SIFROL [Concomitant]
     Active Substance: PRAMIPEXOLE
     Indication: PRODUCT USED FOR UNKNOWN INDICATION
     Dosage: MOUTH WASH
  15. SOBRIL [Concomitant]
     Active Substance: OXAZEPAM
     Indication: PRODUCT USED FOR UNKNOWN INDICATION
  16. INOLAXOL [Concomitant]
     Indication: PRODUCT USED FOR UNKNOWN INDICATION
  17. SOLVEZINK [Concomitant]
     Indication: PRODUCT USED FOR UNKNOWN INDICATION

REACTIONS (20)
  - Anorectal discomfort [Unknown]
  - Breast pain [Recovered/Resolved]
  - Gastrointestinal motility disorder [Recovering/Resolving]
  - Skin induration [Unknown]
  - Nausea [Recovering/Resolving]
  - Early satiety [Unknown]
  - Back pain [Recovered/Resolved]
  - Unevaluable event [Unknown]
  - Stoma site pain [Recovering/Resolving]
  - Paraesthesia [Unknown]
  - Constipation [Unknown]
  - Oropharyngeal pain [Unknown]
  - Haematoma [Unknown]
  - Erythema [Unknown]
  - C-reactive protein increased [Recovering/Resolving]
  - Parkinson^s disease [Recovered/Resolved]
  - Gastritis [Recovering/Resolving]
  - Abdominal pain lower [Unknown]
  - Tooth fracture [Unknown]
  - Polyneuropathy [Unknown]

NARRATIVE: CASE EVENT DATE: 20131111
